FAERS Safety Report 9832080 (Version 1)
Quarter: 2014Q1

REPORT INFORMATION
  Report Type: Report from Study
  Country: US (occurrence: US)
  Receive Date: 20140121
  Receipt Date: 20140121
  Transmission Date: 20141002
  Serious: Yes (Hospitalization)
  Sender: FDA-Public Use
  Company Number: US-ABBVIE-14P-163-1188957-00

PATIENT
  Age: 36 Year
  Sex: Female
  Weight: 84.44 kg

DRUGS (4)
  1. HUMIRA [Suspect]
     Indication: CROHN^S DISEASE
     Dosage: LOADING DOSE
     Dates: start: 201302, end: 201302
  2. HUMIRA [Suspect]
     Dosage: SECOND DOSE
     Dates: start: 2013, end: 2013
  3. HUMIRA [Suspect]
     Dates: start: 2013
  4. TRADAMOL [Concomitant]
     Indication: ARTHRITIS

REACTIONS (11)
  - Blood magnesium decreased [Recovering/Resolving]
  - Nausea [Recovering/Resolving]
  - Fatigue [Recovering/Resolving]
  - Abdominal pain [Recovering/Resolving]
  - Decreased appetite [Recovering/Resolving]
  - Rectal haemorrhage [Recovered/Resolved]
  - Renal disorder [Recovered/Resolved]
  - Blood potassium decreased [Recovering/Resolving]
  - Crohn^s disease [Recovered/Resolved]
  - Vitamin B12 decreased [Recovering/Resolving]
  - Blood calcium decreased [Recovering/Resolving]
